FAERS Safety Report 25095322 (Version 2)
Quarter: 2025Q2

REPORT INFORMATION
  Report Type: Report from Study
  Country: CA (occurrence: CA)
  Receive Date: 20250319
  Receipt Date: 20250414
  Transmission Date: 20250717
  Serious: Yes (Death, Other)
  Sender: SANDOZ
  Company Number: CA-SANDOZ-SDZ2023CA016789

PATIENT
  Sex: Female

DRUGS (4)
  1. HYRIMOZ [Suspect]
     Active Substance: ADALIMUMAB-ADAZ
     Indication: Crohn^s disease
     Dosage: 40 MG PRE FILLED PEN, Q1W;WEEKLY
     Route: 058
     Dates: start: 20220421
  2. HYRIMOZ [Suspect]
     Active Substance: ADALIMUMAB-ADAZ
     Dosage: 80MG WEEKLY WILL BE ON 17-AUG
     Route: 058
  3. HYRIMOZ [Suspect]
     Active Substance: ADALIMUMAB-ADAZ
     Route: 058
  4. HYRIMOZ [Suspect]
     Active Substance: ADALIMUMAB-ADAZ
     Route: 058

REACTIONS (6)
  - Death [Fatal]
  - Dementia Alzheimer^s type [Unknown]
  - Anaemia [Unknown]
  - Incorrect dose administered [Unknown]
  - Therapeutic drug monitoring analysis not performed [Unknown]
  - Off label use [Unknown]
